FAERS Safety Report 24937467 (Version 2)
Quarter: 2025Q1

REPORT INFORMATION
  Report Type: Spontaneous
  Country: US (occurrence: US)
  Receive Date: 20250206
  Receipt Date: 20250313
  Transmission Date: 20250409
  Serious: No
  Sender: ROCHE
  Company Number: US-ROCHE-10000198868

PATIENT
  Sex: Female

DRUGS (2)
  1. XOLAIR [Suspect]
     Active Substance: OMALIZUMAB
     Indication: Chronic spontaneous urticaria
     Route: 065
     Dates: start: 20241220
  2. XOLAIR [Suspect]
     Active Substance: OMALIZUMAB
     Indication: Food allergy
     Route: 065
     Dates: start: 20241025

REACTIONS (14)
  - Arthralgia [Recovered/Resolved]
  - Lymphadenopathy [Recovered/Resolved]
  - Paraesthesia [Recovered/Resolved]
  - Nasal inflammation [Recovered/Resolved]
  - Dyspnoea [Recovered/Resolved]
  - Crepitations [Recovered/Resolved]
  - Pneumonitis [Recovered/Resolved]
  - Off label use [Unknown]
  - Rash [Recovered/Resolved]
  - Erythema [Recovering/Resolving]
  - Pruritus [Recovering/Resolving]
  - Nasal congestion [Recovering/Resolving]
  - Dyspnoea [Recovering/Resolving]
  - Serum sickness [Unknown]

NARRATIVE: CASE EVENT DATE: 20241122
